FAERS Safety Report 8785559 (Version 1)
Quarter: 2012Q4

REPORT INFORMATION
  Report Type: Spontaneous
  Country: US (occurrence: None)
  Receive Date: 20120904
  Receipt Date: 20120904
  Transmission Date: 20130627
  Serious: Yes (Other)
  Sender: FDA-Public Use
  Company Number: 1030077

PATIENT
  Age: 15 Year
  Sex: Male
  Weight: 74.84 kg

DRUGS (1)
  1. DRAMAMINE [Suspect]
     Indication: DRUG ABUSE
     Route: 048
     Dates: start: 20120822, end: 20120824

REACTIONS (2)
  - Overdose [None]
  - Hallucination [None]
